FAERS Safety Report 8544225-2 (Version None)
Quarter: 2012Q3

REPORT INFORMATION
  Report Type: 
  Country: None (occurrence: None)
  Receive Date: 20120727
  Receipt Date: 20120718
  Transmission Date: 20120928
  Serious: Yes (Hospitalization)
  Sender: FDA-Public Use
  Company Number: US-009507513-1207USA008571

PATIENT

DRUGS (1)
  1. PEG-INTRON [Suspect]
     Indication: HEPATITIS C
     Route: 011

REACTIONS (1)
  - HOSPITALISATION [None]
